FAERS Safety Report 4667053-7 (Version None)
Quarter: 2005Q2

REPORT INFORMATION
  Report Type: 
  Country: None (occurrence: None)
  Receive Date: 20050520
  Receipt Date: 20041206
  Transmission Date: 20051028
  Serious: Yes (Other)
  Sender: FDA-Public Use
  Company Number: PHEH2004US12996

PATIENT
  Age: 68 Year
  Sex: Female

DRUGS (3)
  1. AREDIA [Suspect]
     Indication: MULTIPLE MYELOMA
     Dosage: 90 MG, QMO
     Dates: start: 19991101, end: 20041101
  2. THALIDOMIDE [Concomitant]
     Indication: MULTIPLE MYELOMA
     Dosage: 100 MG, QD
     Dates: start: 20001201
  3. DECADRON [Concomitant]
     Indication: MULTIPLE MYELOMA
     Dosage: 40MG QD X 4WEEKS
     Dates: start: 20010501, end: 20031001

REACTIONS (5)
  - INFECTION [None]
  - OSTEONECROSIS [None]
  - PURULENCE [None]
  - TOOTH EXTRACTION [None]
  - WOUND DEBRIDEMENT [None]
